FAERS Safety Report 8711659 (Version 2)
Quarter: 2013Q2

REPORT INFORMATION
  Report Type: Report from Study
  Country: US (occurrence: US)
  Receive Date: 20120807
  Receipt Date: 20130607
  Transmission Date: 20140414
  Serious: Yes (Hospitalization)
  Sender: FDA-Public Use
  Company Number: US-ACTELION-A-NJ2012-69469

PATIENT
  Age: 65 Year
  Sex: Female

DRUGS (3)
  1. VELETRI [Suspect]
     Indication: PULMONARY ARTERIAL HYPERTENSION
     Dosage: 24 NG/KG, PER MIN
     Route: 041
     Dates: start: 20100714
  2. LEVOQUIN [Suspect]
  3. PRADAXA [Concomitant]

REACTIONS (6)
  - Dehydration [Unknown]
  - Fall [Unknown]
  - Pneumonia [Unknown]
  - Local swelling [Unknown]
  - Gait disturbance [Unknown]
  - Depressed mood [Unknown]
